FAERS Safety Report 7329075-7 (Version None)
Quarter: 2011Q1

REPORT INFORMATION
  Report Type: 
  Country: None (occurrence: None)
  Receive Date: 20110225
  Receipt Date: 20110225
  Transmission Date: 20110831
  Serious: Yes (Other)
  Sender: FDA-Public Use
  Company Number: None

PATIENT
  Age: 51 Year
  Sex: Female
  Weight: 90.2658 kg

DRUGS (2)
  1. ZOLPIDEM TARTRATE [Suspect]
     Indication: INSOMNIA
     Dosage: 1/2 TO 1 TAB AT BEDTIME PO
     Route: 048
     Dates: start: 20101206, end: 20110214
  2. ZOLPIDEM TARTRATE [Suspect]
     Indication: STRESS
     Dosage: 1/2 TO 1 TAB AT BEDTIME PO
     Route: 048
     Dates: start: 20101206, end: 20110214

REACTIONS (2)
  - SLEEP-RELATED EATING DISORDER [None]
  - SOMNAMBULISM [None]
